FAERS Safety Report 11672333 (Version 1)
Quarter: 2015Q4

REPORT INFORMATION
  Report Type: Spontaneous
  Country: US (occurrence: US)
  Receive Date: 20151027
  Receipt Date: 20151027
  Transmission Date: 20160304
  Serious: No
  Sender: FDA-Public Use
  Company Number: US-ELI_LILLY_AND_COMPANY-US201006003419

PATIENT
  Sex: Female

DRUGS (2)
  1. FORTEO [Suspect]
     Active Substance: TERIPARATIDE
  2. FORTEO [Suspect]
     Active Substance: TERIPARATIDE
     Indication: OSTEOPOROSIS
     Dosage: UNK, DAILY (1/D)

REACTIONS (8)
  - Breast pain [Unknown]
  - Muscular weakness [Unknown]
  - Back pain [Unknown]
  - Myalgia [Unknown]
  - Hot flush [Unknown]
  - Visual acuity reduced [Unknown]
  - Anger [Unknown]
  - Muscle spasms [Unknown]
